FAERS Safety Report 15838163 (Version 1)
Quarter: 2019Q1

REPORT INFORMATION
  Report Type: Spontaneous
  Country: BG (occurrence: BG)
  Receive Date: 20190117
  Receipt Date: 20190117
  Transmission Date: 20190417
  Serious: Yes (Other)
  Sender: FDA-Public Use
  Company Number: BG-PFIZER INC-2019019083

PATIENT
  Age: 64 Year

DRUGS (5)
  1. DOCETAXEL. [Suspect]
     Active Substance: DOCETAXEL
     Indication: ADENOCARCINOMA
     Dosage: 75 MG/M2, EVERY 3 WEEKS
     Route: 042
     Dates: start: 201412, end: 201412
  2. DOCETAXEL. [Suspect]
     Active Substance: DOCETAXEL
     Dosage: 75 MG/M2, EVERY 3 WEEKS
     Route: 042
     Dates: start: 201310, end: 201310
  3. PREDNISOLONE. [Concomitant]
     Active Substance: PREDNISOLONE
     Dosage: 10 MG, 1X/DAY
     Route: 048
     Dates: start: 201310, end: 201412
  4. ZOLEDRONATE [Concomitant]
     Active Substance: ZOLEDRONIC ACID
     Dosage: 4 MG, UNK, EVERY 21/28 DAYS
     Route: 042
     Dates: start: 201310, end: 201412
  5. FLUTAMIDE. [Concomitant]
     Active Substance: FLUTAMIDE
     Dosage: UNK
     Route: 048
     Dates: start: 20070410

REACTIONS (2)
  - Cholecystitis [Recovered/Resolved]
  - Neuropathy peripheral [Recovering/Resolving]
